FAERS Safety Report 5215282-6 (Version None)
Quarter: 2007Q1

REPORT INFORMATION
  Report Type: 
  Country: None (occurrence: None)
  Receive Date: 20061122
  Receipt Date: 20051130
  Transmission Date: 20070707
  Serious: Yes (Other)
  Sender: FDA-Public Use
  Company Number: HQWYE825505DEC05

PATIENT
  Age: 52 Year
  Sex: Female
  Weight: 65.83 kg

DRUGS (1)
  1. PREMARIN [Suspect]
     Indication: VULVOVAGINAL DRYNESS
     Dosage: 0.5 MG, ONE DOSE, VAGINAL
     Route: 067
     Dates: start: 20050901, end: 20050901

REACTIONS (3)
  - DRUG INEFFECTIVE [None]
  - MICTURITION URGENCY [None]
  - VAGINAL BURNING SENSATION [None]
